FAERS Safety Report 10308704 (Version 1)
Quarter: 2014Q3

REPORT INFORMATION
  Report Type: Spontaneous
  Country: US (occurrence: US)
  Receive Date: 20140716
  Receipt Date: 20140716
  Transmission Date: 20150326
  Serious: Yes (Other)
  Sender: FDA-Public Use
  Company Number: US-ABBVIE-14P-163-1257854-00

PATIENT
  Age: 57 Year
  Sex: Male
  Weight: 81.72 kg

DRUGS (1)
  1. ANDROGEL [Suspect]
     Active Substance: TESTOSTERONE
     Indication: BLOOD TESTOSTERONE DECREASED
     Dosage: TAKING 2 PUMPS - 4 PUMPS
     Dates: start: 2012, end: 201406

REACTIONS (2)
  - Peripheral swelling [Not Recovered/Not Resolved]
  - Rotator cuff syndrome [Recovering/Resolving]
